FAERS Safety Report 14909091 (Version 1)
Quarter: 2018Q2

REPORT INFORMATION
  Report Type: Spontaneous
  Country: US (occurrence: US)
  Receive Date: 20180430
  Receipt Date: 20180430
  Transmission Date: 20180711
  Serious: No
  Sender: FDA-Public Use
  Company Number: None

PATIENT
  Sex: Female

DRUGS (1)
  1. RASUVO [Suspect]
     Active Substance: METHOTREXATE SODIUM
     Indication: RHEUMATOID ARTHRITIS
     Dosage: ?          OTHER DOSE:20MG/0.4ML;?
     Route: 058
     Dates: start: 201712

REACTIONS (3)
  - Stomatitis [None]
  - Arthropathy [None]
  - Drug ineffective [None]
